FAERS Safety Report 6040076-1 (Version None)
Quarter: 2009Q1

REPORT INFORMATION
  Report Type: 
  Country: None (occurrence: None)
  Receive Date: 20090116
  Receipt Date: 20071203
  Transmission Date: 20090719
  Serious: No
  Sender: FDA-Public Use
  Company Number: US-BRISTOL-MYERS SQUIBB COMPANY-14005110

PATIENT
  Age: 12 Year
  Sex: Female

DRUGS (3)
  1. ABILIFY [Suspect]
     Indication: BIPOLAR DISORDER
     Route: 048
     Dates: start: 20050201
  2. RITALIN [Concomitant]
  3. CLONIDINE [Concomitant]

REACTIONS (1)
  - TARDIVE DYSKINESIA [None]
